FAERS Safety Report 9422558 (Version 1)
Quarter: 2013Q3

REPORT INFORMATION
  Report Type: Spontaneous
  Country: CN (occurrence: CN)
  Receive Date: 20130726
  Receipt Date: 20130726
  Transmission Date: 20140515
  Serious: Yes (Hospitalization)
  Sender: FDA-Public Use
  Company Number: CN-JNJFOC-20130710442

PATIENT
  Age: 44 Year
  Sex: Female

DRUGS (3)
  1. RISPERDAL [Suspect]
     Indication: SCHIZOPHRENIA
     Route: 048
     Dates: start: 20130619
  2. RISPERDAL [Suspect]
     Indication: SCHIZOPHRENIA
     Dosage: 1 MG *20
     Route: 048
     Dates: start: 201304
  3. BENZHEXOL HYDROCHLORIDE [Concomitant]
     Route: 048

REACTIONS (3)
  - Extrapyramidal disorder [Unknown]
  - Soliloquy [Not Recovered/Not Resolved]
  - Weight decreased [Not Recovered/Not Resolved]
